FAERS Safety Report 8883393 (Version 9)
Quarter: 2013Q4

REPORT INFORMATION
  Report Type: Spontaneous
  Country: US (occurrence: US)
  Receive Date: 20121102
  Receipt Date: 20131011
  Transmission Date: 20140711
  Serious: Yes (Other)
  Sender: FDA-Public Use
  Company Number: US-009507513-1211USA000250

PATIENT
  Age: 49 Year
  Sex: Female

DRUGS (3)
  1. PEGINTRON [Suspect]
     Indication: HEPATITIS C
     Dosage: REDIPEN
     Route: 058
     Dates: start: 20121005, end: 20130614
  2. REBETOL [Suspect]
     Indication: HEPATITIS C
     Dosage: UNK
     Route: 048
     Dates: start: 20121005, end: 20130614
  3. VICTRELIS [Suspect]
     Indication: HEPATITIS C
     Dosage: UNK
     Route: 048
     Dates: start: 20121021, end: 20130614

REACTIONS (76)
  - Bipolar I disorder [Not Recovered/Not Resolved]
  - Paranoia [Not Recovered/Not Resolved]
  - Cataract [Unknown]
  - Visual field defect [Unknown]
  - Optic neuropathy [Unknown]
  - Mania [Unknown]
  - Hallucination, auditory [Unknown]
  - Neuropathy peripheral [Unknown]
  - Vomiting [Recovered/Resolved]
  - Dry eye [Unknown]
  - Dry mouth [Unknown]
  - Sjogren^s syndrome [Unknown]
  - Depression [Unknown]
  - Aphagia [Unknown]
  - Vomiting [Unknown]
  - Pain [Unknown]
  - Vomiting [Unknown]
  - Anaemia [Unknown]
  - Headache [Unknown]
  - Vomiting [Unknown]
  - Vomiting [Unknown]
  - Gastrooesophageal reflux disease [Unknown]
  - Vomiting [Unknown]
  - Feeling abnormal [Unknown]
  - Tinnitus [Unknown]
  - Ear pain [Unknown]
  - Vomiting [Unknown]
  - Feeling abnormal [Unknown]
  - Blood disorder [Not Recovered/Not Resolved]
  - Feeling abnormal [Not Recovered/Not Resolved]
  - Impaired healing [Not Recovered/Not Resolved]
  - Panic attack [Unknown]
  - Vomiting [Unknown]
  - Fear [Not Recovered/Not Resolved]
  - Vomiting [Not Recovered/Not Resolved]
  - Tremor [Unknown]
  - Influenza like illness [Unknown]
  - Influenza like illness [Unknown]
  - Drug ineffective [Unknown]
  - Nausea [Unknown]
  - Dehydration [Unknown]
  - Depression [Unknown]
  - Headache [Unknown]
  - Chills [Unknown]
  - Weight decreased [Unknown]
  - Fatigue [Unknown]
  - Dizziness [Unknown]
  - Headache [Unknown]
  - Asthenia [Unknown]
  - Nausea [Unknown]
  - Nausea [Unknown]
  - Chills [Unknown]
  - Pyrexia [Unknown]
  - Headache [Unknown]
  - Dehydration [Unknown]
  - Abdominal discomfort [Unknown]
  - Dehydration [Unknown]
  - Depression [Unknown]
  - Pyrexia [Not Recovered/Not Resolved]
  - Headache [Unknown]
  - Dizziness [Unknown]
  - Fatigue [Unknown]
  - Drug ineffective [Unknown]
  - Pyrexia [Unknown]
  - Chills [Unknown]
  - Influenza [Unknown]
  - Depression [Unknown]
  - Dizziness [Unknown]
  - Dyspnoea [Unknown]
  - Migraine [Unknown]
  - Pyrexia [Not Recovered/Not Resolved]
  - Diarrhoea [Not Recovered/Not Resolved]
  - Fatigue [Not Recovered/Not Resolved]
  - Vomiting [Not Recovered/Not Resolved]
  - Drug ineffective [Unknown]
  - Panic attack [Unknown]
